FAERS Safety Report 8408159-6 (Version None)
Quarter: 2012Q2

REPORT INFORMATION
  Report Type: 
  Country: None (occurrence: None)
  Receive Date: 20120604
  Receipt Date: 20120528
  Transmission Date: 20120825
  Serious: Yes (Hospitalization)
  Sender: FDA-Public Use
  Company Number: CHNY2012IT000460

PATIENT
  Sex: Female

DRUGS (7)
  1. DURAGESIC-100 [Concomitant]
     Dosage: 25 UG, Q72H
  2. ENOXAPARIN SODIUM [Concomitant]
     Dosage: 1 DF, QD
     Route: 058
  3. ZYPREXA [Concomitant]
     Dosage: 5 MG, BID
  4. MIRTAZAPINE [Concomitant]
     Dosage: 15 MG, QN
  5. FUROSEMIDE [Concomitant]
  6. LASIX [Concomitant]
     Dosage: 125 MG, Q48H
  7. PURSENNID [Suspect]
     Indication: CONSTIPATION
     Dosage: 4 DF, ONCE/SINGLE
     Route: 048
     Dates: start: 20120315

REACTIONS (8)
  - LEUKOCYTOSIS [None]
  - INTESTINAL DILATATION [None]
  - ABDOMINAL PAIN [None]
  - SYNCOPE [None]
  - BLOOD BILIRUBIN INCREASED [None]
  - DISORIENTATION [None]
  - HYPOKALAEMIA [None]
  - BLOOD PRESSURE INCREASED [None]
